FAERS Safety Report 7740683-1 (Version None)
Quarter: 2011Q3

REPORT INFORMATION
  Report Type: 
  Country: None (occurrence: None)
  Receive Date: 20110909
  Receipt Date: 20110830
  Transmission Date: 20111222
  Serious: Yes (Other)
  Sender: FDA-Public Use
  Company Number: US-BAYER-2011-009543

PATIENT
  Age: 29 Year
  Sex: Female
  Weight: 119.27 kg

DRUGS (9)
  1. YAZ [Suspect]
     Indication: CONTRACEPTION
     Dosage: UNK
     Dates: start: 20090801, end: 20091001
  2. PROZAC [Concomitant]
     Dosage: 20 MG, QD
     Route: 048
     Dates: start: 20090818
  3. CEPHALEXIN [Concomitant]
     Dosage: 500 MG, UNK
     Route: 048
     Dates: start: 20090824
  4. FOCALIN [Concomitant]
     Dosage: 10 MG, BID
     Route: 048
     Dates: start: 20091001
  5. OXYCODONE HCL AND ACETAMINOPHEN [Concomitant]
     Dosage: UNK UNK, PRN
     Route: 048
     Dates: start: 20090824
  6. ANAPROX DS [Concomitant]
     Dosage: UNK
     Route: 048
     Dates: start: 20090822
  7. CLONAZEPAM [Concomitant]
     Dosage: 3 MG, QD
     Route: 048
     Dates: start: 20091030
  8. SULFATRIM-DS [Concomitant]
     Dosage: UNK
     Route: 048
     Dates: start: 20090902
  9. HYDROCODONE BITARTRATE AND ACETAMINOPHEN [Concomitant]
     Indication: PAIN
     Dosage: UNK UNK, PRN
     Dates: start: 20090902

REACTIONS (7)
  - ASPARTATE AMINOTRANSFERASE INCREASED [None]
  - METRORRHAGIA [None]
  - ALANINE AMINOTRANSFERASE INCREASED [None]
  - CHOLELITHIASIS [None]
  - PAIN [None]
  - GALLBLADDER DISORDER [None]
  - EMOTIONAL DISTRESS [None]
